FAERS Safety Report 7400593-6 (Version None)
Quarter: 2011Q2

REPORT INFORMATION
  Report Type: 
  Country: None (occurrence: None)
  Receive Date: 20110407
  Receipt Date: 20110405
  Transmission Date: 20111010
  Serious: Yes (Death, Hospitalization)
  Sender: FDA-Public Use
  Company Number: FR-PFIZER INC-2011035490

PATIENT
  Age: 66 Year
  Sex: Female
  Weight: 95 kg

DRUGS (5)
  1. SUTENT [Suspect]
     Indication: GASTROINTESTINAL STROMAL TUMOUR
     Dosage: 37.5 MG, 1X/DAY
     Route: 048
     Dates: start: 20110121, end: 20110215
  2. LASIX [Concomitant]
     Indication: OEDEMA
     Dosage: 20 MG, 1X/DAY
     Route: 048
     Dates: start: 20101222
  3. OFLOCET [Concomitant]
     Indication: URINARY TRACT INFECTION
     Dosage: 200 MG, 2X/DAY
     Route: 048
     Dates: start: 20110122, end: 20110127
  4. LASIX [Concomitant]
     Indication: ASCITES
  5. INNOHEP [Concomitant]
     Indication: PULMONARY EMBOLISM
     Dosage: 0.7 ML, 1X/DAY
     Route: 058
     Dates: start: 20100131

REACTIONS (2)
  - TUMOUR HAEMORRHAGE [None]
  - SHOCK HAEMORRHAGIC [None]
